FAERS Safety Report 10678359 (Version 1)
Quarter: 2014Q4

REPORT INFORMATION
  Report Type: Spontaneous
  Country: None (occurrence: None)
  Receive Date: 20141224
  Receipt Date: 20141224
  Transmission Date: 20150529
  Serious: No
  Sender: FDA-Public Use
  Company Number: None

PATIENT
  Age: 31 Year
  Sex: Female
  Weight: 90 kg

DRUGS (1)
  1. PARAGARD T380A [Suspect]
     Active Substance: COPPER
     Dates: start: 20140114

REACTIONS (16)
  - Malaise [None]
  - Rash pruritic [None]
  - Fatigue [None]
  - Menorrhagia [None]
  - Blister [None]
  - Vomiting [None]
  - Urinary tract infection [None]
  - Dyspareunia [None]
  - Dysmenorrhoea [None]
  - Migraine [None]
  - Headache [None]
  - Mood altered [None]
  - Rash [None]
  - Scab [None]
  - Nausea [None]
  - Pelvic pain [None]

NARRATIVE: CASE EVENT DATE: 20141223
